FAERS Safety Report 4272891-9 (Version None)
Quarter: 2004Q1

REPORT INFORMATION
  Report Type: 
  Country: None (occurrence: None)
  Receive Date: 20040114
  Receipt Date: 20040105
  Transmission Date: 20041129
  Serious: Yes (Other)
  Sender: FDA-Public Use
  Company Number: US-JNJFOC-20031005558

PATIENT
  Age: 57 Year
  Sex: Female
  Weight: 62.5964 kg

DRUGS (7)
  1. REMICADE [Suspect]
     Dosage: INTRAVENOUS; INTRAVENOUS; 400 MG, 1 IN 1 DAY, INTRAVENOUS
     Route: 042
     Dates: start: 20001101
  2. REMICADE [Suspect]
     Dosage: INTRAVENOUS; INTRAVENOUS; 400 MG, 1 IN 1 DAY, INTRAVENOUS
     Route: 042
     Dates: start: 20010101
  3. REMICADE [Suspect]
     Dosage: INTRAVENOUS; INTRAVENOUS; 400 MG, 1 IN 1 DAY, INTRAVENOUS
     Route: 042
     Dates: start: 20020101
  4. METHOTREXATE [Concomitant]
  5. ARAVA [Concomitant]
  6. STEROIDS (CORTICOSTEROIDS NOS) [Concomitant]
  7. PLAQUINIL (HYDROXYCHLOROQUINE PHOSPHATE) [Concomitant]

REACTIONS (2)
  - MYCOBACTERIUM AVIUM COMPLEX INFECTION [None]
  - OVARIAN CANCER [None]
